FAERS Safety Report 10075665 (Version 4)
Quarter: 2016Q3

REPORT INFORMATION
  Report Type: Spontaneous
  Country: US (occurrence: US)
  Receive Date: 20140414
  Receipt Date: 20160718
  Transmission Date: 20161108
  Serious: Yes (Hospitalization, Congenital Anomaly)
  Sender: FDA-Public Use
  Company Number: US-ELI_LILLY_AND_COMPANY-US201404001907

PATIENT
  Sex: Female

DRUGS (2)
  1. PROZAC [Suspect]
     Active Substance: FLUOXETINE HYDROCHLORIDE
     Indication: PRODUCT USED FOR UNKNOWN INDICATION
     Dosage: UNK, UNKNOWN
     Route: 064
  2. PROZAC [Suspect]
     Active Substance: FLUOXETINE HYDROCHLORIDE
     Indication: PRODUCT USED FOR UNKNOWN INDICATION
     Dosage: UNK, UNKNOWN
     Route: 064

REACTIONS (14)
  - Malformation venous [Unknown]
  - Foetal exposure during pregnancy [Unknown]
  - Pulmonary artery stenosis congenital [Unknown]
  - Cardiac malposition [Unknown]
  - Ventricular septal defect [Unknown]
  - Persistent left superior vena cava [Unknown]
  - Patent ductus arteriosus [Unknown]
  - Congenital arterial malformation [Unknown]
  - Respiratory distress [Unknown]
  - Right ventricular enlargement [Unknown]
  - VACTERL syndrome [Unknown]
  - Vesicoureteric reflux [Unknown]
  - Congenital great vessel anomaly [Unknown]
  - Atrial septal defect [Unknown]
